FAERS Safety Report 24745135 (Version 1)
Quarter: 2024Q4

REPORT INFORMATION
  Report Type: Spontaneous
  Country: US (occurrence: US)
  Receive Date: 20241217
  Receipt Date: 20241217
  Transmission Date: 20250115
  Serious: No
  Sender: GE HEALTHCARE
  Company Number: US-GE HEALTHCARE-2024CSU012547

PATIENT
  Age: 77 Year
  Sex: Male

DRUGS (2)
  1. OPTISON [Suspect]
     Active Substance: HUMAN ALBUMIN MICROSPHERES\PERFLUTREN
     Indication: Echocardiogram
     Dosage: 1.5 ML, TOTAL
     Route: 042
     Dates: start: 20240919, end: 20240919
  2. SALINE [Concomitant]
     Active Substance: SODIUM CHLORIDE
     Dosage: 3.5 ML
     Route: 042
     Dates: start: 20240919, end: 20240919

REACTIONS (1)
  - Oropharyngeal discomfort [Recovered/Resolved]

NARRATIVE: CASE EVENT DATE: 20240919
